FAERS Safety Report 13328519 (Version 3)
Quarter: 2017Q1

REPORT INFORMATION
  Report Type: Spontaneous
  Country: JP (occurrence: JP)
  Receive Date: 20170313
  Receipt Date: 20170329
  Transmission Date: 20170428
  Serious: Yes (Life-Threatening, Other)
  Sender: FDA-Public Use
  Company Number: JP-ROCHE-1905584

PATIENT
  Age: 8 Decade
  Sex: Female

DRUGS (3)
  1. NEDAPLATIN [Concomitant]
     Active Substance: NEDAPLATIN
     Indication: CERVIX CARCINOMA
     Dosage: DOSAGE IS UNCERTAIN.
     Route: 041
  2. AVASTIN [Suspect]
     Active Substance: BEVACIZUMAB
     Indication: CERVIX CARCINOMA
     Route: 041
  3. IRINOTECAN HYDROCHLORIDE. [Concomitant]
     Active Substance: IRINOTECAN HYDROCHLORIDE
     Indication: CERVIX CARCINOMA
     Dosage: DOSAGE IS UNCERTAIN.
     Route: 041

REACTIONS (2)
  - Intestinal fistula [Recovered/Resolved]
  - Disseminated intravascular coagulation [Unknown]

NARRATIVE: CASE EVENT DATE: 201702
